FAERS Safety Report 12590538 (Version 2)
Quarter: 2016Q4

REPORT INFORMATION
  Report Type: Spontaneous
  Country: US (occurrence: US)
  Receive Date: 20160725
  Receipt Date: 20161024
  Transmission Date: 20170207
  Serious: No
  Sender: FDA-Public Use
  Company Number: US-009507513-1607USA008810

PATIENT
  Sex: Female
  Weight: 131.52 kg

DRUGS (1)
  1. IMPLANON [Suspect]
     Active Substance: ETONOGESTREL
     Dosage: STRENGTH:68 (UNIT NOT PROVIDED)
     Route: 059

REACTIONS (2)
  - Complication associated with device [Unknown]
  - Weight fluctuation [Unknown]
